FAERS Safety Report 4687304-2 (Version None)
Quarter: 2005Q2

REPORT INFORMATION
  Report Type: 
  Country: None (occurrence: None)
  Receive Date: 20050608
  Receipt Date: 20050526
  Transmission Date: 20051028
  Serious: Yes (Other)
  Sender: FDA-Public Use
  Company Number: 2005080811

PATIENT
  Sex: Female
  Weight: 63.5036 kg

DRUGS (12)
  1. FELDENE [Suspect]
     Indication: PAIN
     Dosage: 20 MG (20 MG, 1 IN 1 D), ORAL
     Route: 048
  2. ALL OTHER THERAPEUTIC PRODUCTS (ALL OTHER THERAPEUTIC PRODUCTS0 [Suspect]
     Indication: PAIN
  3. HYDROCODONE (HYDROCODONE0 [Suspect]
     Indication: PAIN
     Dates: start: 19960101
  4. PHENTOXIFLYLLINE (PENTOXIFYLLINE) [Concomitant]
  5. FOSAMAX [Concomitant]
  6. NITROSTAT [Concomitant]
  7. PROTONIX [Concomitant]
  8. ESTROGENS (ESTROGENS) [Concomitant]
  9. BELLAMINE (BELLADONNA ALKALOIDS, ERGOTAMINE TARTRATE, PHENOBARBITAL) [Concomitant]
  10. SULFASALAZINE [Concomitant]
  11. LASIX [Concomitant]
  12. SKELAXIN [Concomitant]

REACTIONS (15)
  - ABDOMINAL PAIN UPPER [None]
  - ARTERIAL OCCLUSIVE DISEASE [None]
  - BODY HEIGHT DECREASED [None]
  - BREAST CANCER [None]
  - BREAST HAEMORRHAGE [None]
  - CERVICAL VERTEBRAL FRACTURE [None]
  - CONDITION AGGRAVATED [None]
  - CONSTIPATION [None]
  - DEPRESSION [None]
  - FALL [None]
  - OSTEOPOROSIS [None]
  - RASH PRURITIC [None]
  - RHEUMATOID ARTHRITIS [None]
  - RIB FRACTURE [None]
  - SPINAL FRACTURE [None]
